FAERS Safety Report 8472789-6 (Version None)
Quarter: 2012Q2

REPORT INFORMATION
  Report Type: 
  Country: None (occurrence: None)
  Receive Date: 20120627
  Receipt Date: 20120615
  Transmission Date: 20120825
  Serious: Yes (Other)
  Sender: FDA-Public Use
  Company Number: JP-VERTEX PHARMACEUTICALS INC.-AE-2012-009135

PATIENT
  Age: 46 Year
  Sex: Male

DRUGS (14)
  1. PEGINTERFERON ALFA-2B [Concomitant]
     Route: 058
     Dates: start: 20120606
  2. VOLTAREN [Concomitant]
     Route: 054
     Dates: start: 20120428
  3. TELAVIC (TELAPREVIR) [Suspect]
     Indication: HEPATITIS C
     Route: 048
     Dates: start: 20120428
  4. BETAMETHASONE SODIUM PHOSPHATE [Concomitant]
     Route: 061
     Dates: start: 20120507, end: 20120507
  5. PEGINTERFERON ALFA-2B [Concomitant]
     Indication: HEPATITIS C
     Route: 058
     Dates: start: 20120428, end: 20120504
  6. PEGINTERFERON ALFA-2B [Concomitant]
     Route: 058
     Dates: start: 20120505, end: 20120605
  7. TALION [Concomitant]
     Route: 048
     Dates: start: 20120428
  8. RIBAVIRIN [Concomitant]
     Route: 048
     Dates: start: 20120428
  9. METFORMIN HCL [Concomitant]
     Route: 048
  10. JANUVIA [Concomitant]
     Route: 048
  11. NEXIUM [Concomitant]
     Route: 048
     Dates: start: 20120428
  12. ALLOPURINOL [Concomitant]
     Route: 048
     Dates: start: 20120502
  13. BIO-THREE [Concomitant]
     Route: 048
     Dates: start: 20120521
  14. OLMETEC [Concomitant]
     Route: 048

REACTIONS (1)
  - WHITE BLOOD CELL COUNT DECREASED [None]
